FAERS Safety Report 9140745 (Version 1)
Quarter: 2013Q1

REPORT INFORMATION
  Report Type: Spontaneous
  Country: US (occurrence: US)
  Receive Date: 20130305
  Receipt Date: 20130305
  Transmission Date: 20140127
  Serious: Yes (Other)
  Sender: FDA-Public Use
  Company Number: US-ENDO PHARMACEUTICALS INC.-OPIR20120007

PATIENT
  Sex: Male
  Weight: 77.18 kg

DRUGS (4)
  1. OPANA [Suspect]
     Indication: PAIN
     Dosage: UNKNOWN
     Route: 048
  2. OXYCONTIN [Suspect]
     Indication: PAIN
     Route: 048
     Dates: end: 2011
  3. OXYCONTIN [Suspect]
     Route: 048
     Dates: start: 201201, end: 201201
  4. OXYCONTIN [Suspect]
     Route: 048
     Dates: start: 201201

REACTIONS (4)
  - Convulsion [Unknown]
  - Tinnitus [Unknown]
  - Withdrawal syndrome [Unknown]
  - Weight decreased [Unknown]
